FAERS Safety Report 18135602 (Version 1)
Quarter: 2020Q3

REPORT INFORMATION
  Report Type: Spontaneous
  Country: US (occurrence: US)
  Receive Date: 20200811
  Receipt Date: 20200811
  Transmission Date: 20201103
  Serious: Yes (Hospitalization)
  Sender: FDA-Public Use
  Company Number: US-SAGENT PHARMACEUTICALS-2020SAG001686

PATIENT

DRUGS (4)
  1. OXALIPLATIN. [Suspect]
     Active Substance: OXALIPLATIN
     Indication: ADENOCARCINOMA GASTRIC
     Dosage: 85MG/M2, OVER 2 HOURS ON DAYS 1 AND 15
     Route: 042
  2. FLOXURIDINE. [Suspect]
     Active Substance: FLOXURIDINE
     Indication: ADENOCARCINOMA GASTRIC
     Dosage: 110 MG/KG, OVER 24 HOURS ON DAYS 1, 8, 15
     Route: 042
  3. LEUCOVORIN CALCIUM. [Suspect]
     Active Substance: LEUCOVORIN CALCIUM
     Indication: ADENOCARCINOMA GASTRIC
     Dosage: 500 MG/M2 OVER 24 HOURS ON DAYS 1, 8, 15
     Route: 042
  4. DOCETAXEL. [Suspect]
     Active Substance: DOCETAXEL
     Indication: ADENOCARCINOMA GASTRIC
     Dosage: 25 MG/M2, OVER 30 MINUTES ON DAYS 1, 8, 15
     Route: 042

REACTIONS (1)
  - Tumour lysis syndrome [Recovered/Resolved]
